FAERS Safety Report 9410044 (Version 1)
Quarter: 2013Q3

REPORT INFORMATION
  Report Type: Report from Study
  Country: US (occurrence: US)
  Receive Date: 20130719
  Receipt Date: 20130719
  Transmission Date: 20140515
  Serious: Yes (Hospitalization)
  Sender: FDA-Public Use
  Company Number: US-BAYER-2013-082771

PATIENT
  Age: 69 Year
  Sex: Female

DRUGS (3)
  1. SORAFENIB (RAF KINASE INHIBITOR) [Suspect]
     Indication: ACUTE MYELOID LEUKAEMIA
  2. FILGRASTIM [Suspect]
     Indication: ACUTE MYELOID LEUKAEMIA
  3. PLERIXAFOR [Suspect]
     Indication: ACUTE MYELOID LEUKAEMIA

REACTIONS (1)
  - Muscular weakness [Not Recovered/Not Resolved]
